FAERS Safety Report 4279220-5 (Version None)
Quarter: 2004Q1

REPORT INFORMATION
  Report Type: 
  Country: None (occurrence: None)
  Receive Date: 20040122
  Receipt Date: 20040108
  Transmission Date: 20041129
  Serious: Yes (Hospitalization)
  Sender: FDA-Public Use
  Company Number: CIP03002788

PATIENT
  Age: 62 Year
  Sex: Female

DRUGS (5)
  1. BENET (RISEDRONATE SODIUM)TABLET, 2.5 MG [Suspect]
     Indication: OSTEOPOROSIS
     Dosage: 2.5 MG DAILY, ORAL
     Route: 048
     Dates: start: 20030621, end: 20030728
  2. TOWARAT (NIFEDIPINE) [Concomitant]
  3. DEPAS (ETIZOLAM) [Concomitant]
  4. LAC B (LACTOBACILLUS BIFIDUS LYOPHILIZED) [Concomitant]
  5. MERISLON (BETAHISTINE HYDROCHLORIDE) [Concomitant]

REACTIONS (6)
  - CHOLELITHIASIS [None]
  - EOSINOPHIL PERCENTAGE INCREASED [None]
  - HAEMATOCRIT INCREASED [None]
  - HEPATIC FUNCTION ABNORMAL [None]
  - HEPATOCELLULAR DAMAGE [None]
  - LYMPHOCYTE STIMULATION TEST POSITIVE [None]
